FAERS Safety Report 22313363 (Version 1)
Quarter: 2023Q2

REPORT INFORMATION
  Report Type: Spontaneous
  Country: FR (occurrence: FR)
  Receive Date: 20230512
  Receipt Date: 20230512
  Transmission Date: 20230722
  Serious: Yes (Other)
  Sender: FDA-Public Use
  Company Number: FR-AFSSAPS-MA2023001522

PATIENT
  Age: 34 Year
  Sex: Female
  Weight: 107 kg

DRUGS (3)
  1. SILDENAFIL [Suspect]
     Active Substance: SILDENAFIL
     Indication: Weight decreased
     Dosage: 2 PACKETS OF TREX TEA PER DAY
     Route: 048
     Dates: start: 2022
  2. SIBUTRAMINE [Suspect]
     Active Substance: SIBUTRAMINE
     Indication: Weight decreased
     Dosage: 2 PACKETS OF TREX TEA PER DAY
     Route: 048
     Dates: start: 2022
  3. DIETARY SUPPLEMENT [Suspect]
     Active Substance: DIETARY SUPPLEMENT
     Indication: Weight decreased
     Dosage: 2 PACKETS OF TREX TEA PER DAY
     Route: 048
     Dates: start: 2022

REACTIONS (6)
  - Decreased appetite [Unknown]
  - Fatigue [Unknown]
  - Nausea [Unknown]
  - Tachycardia [Unknown]
  - Weight decreased [Unknown]
  - Suspected counterfeit product [Unknown]

NARRATIVE: CASE EVENT DATE: 20220101
